FAERS Safety Report 6915226-2 (Version None)
Quarter: 2010Q3

REPORT INFORMATION
  Report Type: 
  Country: None (occurrence: None)
  Receive Date: 20100809
  Receipt Date: 20100324
  Transmission Date: 20110219
  Serious: No
  Sender: FDA-Public Use
  Company Number: DE-TYCO HEALTHCARE/MALLINCKRODT-T201001004

PATIENT

DRUGS (4)
  1. OPTIRAY 350 [Suspect]
     Indication: ARTHROSCOPY
     Route: 014
  2. SODIUM CHLORIDE [Suspect]
     Indication: ARTHROSCOPY
     Route: 013
  3. MAGNEVIST [Suspect]
     Indication: ARTHROSCOPY
     Dosage: 1 ML, UNK
     Route: 013
  4. LIDOCAINE [Suspect]
     Indication: ARTHROSCOPY
     Route: 013

REACTIONS (1)
  - OFF LABEL USE [None]
